FAERS Safety Report 17548803 (Version 1)
Quarter: 2020Q1

REPORT INFORMATION
  Report Type: Spontaneous
  Country: US (occurrence: US)
  Receive Date: 20200317
  Receipt Date: 20200317
  Transmission Date: 20200409
  Serious: No
  Sender: FDA-Public Use
  Company Number: US-ALLERGAN-1923320US

PATIENT
  Sex: Female
  Weight: 68.03 kg

DRUGS (4)
  1. NORCO [Suspect]
     Active Substance: ACETAMINOPHEN\HYDROCODONE BITARTRATE
     Indication: ABDOMINAL PAIN
     Dosage: 1 DF, QD
     Route: 048
     Dates: start: 20190516
  2. HUMIRA [Suspect]
     Active Substance: ADALIMUMAB
     Dosage: 80 MG, SINGLE
     Route: 058
     Dates: start: 201904, end: 201904
  3. VICODIN [Suspect]
     Active Substance: ACETAMINOPHEN\HYDROCODONE BITARTRATE
     Indication: ABDOMINAL PAIN
     Dosage: 1 DF, QD
     Route: 048
     Dates: start: 20190516
  4. HUMIRA [Suspect]
     Active Substance: ADALIMUMAB
     Indication: PSORIASIS
     Dosage: 40 MG,1 IN 2 WEEK
     Route: 058
     Dates: start: 201905, end: 201905

REACTIONS (11)
  - Sinusitis [Unknown]
  - Bronchitis [Unknown]
  - Splenic cyst [Not Recovered/Not Resolved]
  - Hypophagia [Recovering/Resolving]
  - Abdominal pain [Not Recovered/Not Resolved]
  - Cyst rupture [Not Recovered/Not Resolved]
  - Decreased appetite [Not Recovered/Not Resolved]
  - Cyst [Not Recovered/Not Resolved]
  - Fluid intake reduced [Recovering/Resolving]
  - Nausea [Not Recovered/Not Resolved]
  - Vaginal haemorrhage [Recovered/Resolved]
